FAERS Safety Report 8395579-1 (Version None)
Quarter: 2012Q2

REPORT INFORMATION
  Report Type: 
  Country: None (occurrence: None)
  Receive Date: 20120530
  Receipt Date: 20110927
  Transmission Date: 20120825
  Serious: No
  Sender: FDA-Public Use
  Company Number: US-GLAXOSMITHKLINE-A0946182A

PATIENT
  Age: 54 Year
  Sex: Male

DRUGS (2)
  1. VENTOLIN [Suspect]
     Indication: ASTHMA
     Dosage: 2PUFF TWICE PER DAY
     Route: 055
     Dates: start: 19780101
  2. SPIRIVA [Concomitant]

REACTIONS (3)
  - DYSPNOEA [None]
  - THERAPY REGIMEN CHANGED [None]
  - CHEST DISCOMFORT [None]
